FAERS Safety Report 13470928 (Version 1)
Quarter: 2017Q2

REPORT INFORMATION
  Report Type: Spontaneous
  Country: US (occurrence: US)
  Receive Date: 20170424
  Receipt Date: 20170424
  Transmission Date: 20170830
  Serious: No
  Sender: FDA-Public Use
  Company Number: US-TEVA-735309ACC

PATIENT
  Sex: Male

DRUGS (1)
  1. LOSARTAN. [Suspect]
     Active Substance: LOSARTAN
     Indication: HYPERTENSION

REACTIONS (6)
  - Nausea [Unknown]
  - Abdominal pain [Unknown]
  - Vomiting [Unknown]
  - Back pain [Unknown]
  - Splenomegaly [Unknown]
  - Hepatomegaly [Unknown]
